FAERS Safety Report 7750949-7 (Version None)
Quarter: 2011Q3

REPORT INFORMATION
  Report Type: 
  Country: None (occurrence: None)
  Receive Date: 20110914
  Receipt Date: 20110902
  Transmission Date: 20111222
  Serious: Yes (Hospitalization, Other)
  Sender: FDA-Public Use
  Company Number: US-ELI_LILLY_AND_COMPANY-US201109001701

PATIENT
  Sex: Male
  Weight: 147.39 kg

DRUGS (7)
  1. BYETTA [Suspect]
     Indication: TYPE 2 DIABETES MELLITUS
     Dosage: 5 UG, BID
     Route: 058
  2. GLYBURIDE [Concomitant]
     Indication: TYPE 2 DIABETES MELLITUS
     Dosage: 5 MG, BID
     Route: 048
  3. SPIRIVA [Concomitant]
     Indication: EMPHYSEMA
     Dosage: UNK, QD
     Route: 055
  4. GLUCOPHAGE [Concomitant]
     Indication: TYPE 2 DIABETES MELLITUS
     Dosage: 500 MG, BID
     Route: 048
  5. SYMBICORT [Concomitant]
     Indication: EMPHYSEMA
     Dosage: UNK, QD
     Route: 055
  6. VENTOLIN [Concomitant]
     Indication: EMPHYSEMA
     Dosage: UNK, QD
     Route: 055
  7. BYETTA [Suspect]
     Dosage: 10 UG, BID
     Route: 058

REACTIONS (6)
  - OXYGEN SATURATION DECREASED [None]
  - DYSPNOEA EXERTIONAL [None]
  - DYSPNOEA [None]
  - BLOOD GLUCOSE INCREASED [None]
  - OFF LABEL USE [None]
  - EMPHYSEMA [None]
